FAERS Safety Report 25570460 (Version 8)
Quarter: 2025Q4

REPORT INFORMATION
  Report Type: Spontaneous
  Country: CA (occurrence: CA)
  Receive Date: 20250717
  Receipt Date: 20251013
  Transmission Date: 20260117
  Serious: Yes (Other)
  Sender: ASTELLAS
  Company Number: CA-PFIZER INC-PV202500002546

PATIENT
  Age: 68 Year
  Sex: Male
  Weight: 71 kg

DRUGS (16)
  1. PADCEV [Suspect]
     Active Substance: ENFORTUMAB VEDOTIN-EJFV
     Indication: Transitional cell carcinoma metastatic
     Dosage: 1.25 MG/KG, CYCLIC, CYCLE 1 INFUSION #1 (ON DAY 1 AND DAY 8)?POWDER FOR SOLUTION FOR INFUSION
     Route: 042
     Dates: start: 20250103
  2. PADCEV [Suspect]
     Active Substance: ENFORTUMAB VEDOTIN-EJFV
     Dosage: 92.5 MG, CYCLIC (D1 AND D8 OF 21 DAY CYCLE)?POWDER FOR SOLUTION FOR INFUSION
     Route: 042
     Dates: start: 20250110
  3. PADCEV [Suspect]
     Active Substance: ENFORTUMAB VEDOTIN-EJFV
     Dosage: 92.5 MG, CYCLIC (D1 AND D8 OF 21 DAY CYCLE)?POWDER FOR SOLUTION FOR INFUSION
     Route: 042
     Dates: start: 20250227
  4. PADCEV [Suspect]
     Active Substance: ENFORTUMAB VEDOTIN-EJFV
     Dosage: UNK?POWDER FOR SOLUTION FOR INFUSION
     Route: 042
     Dates: start: 20250314
  5. PADCEV [Suspect]
     Active Substance: ENFORTUMAB VEDOTIN-EJFV
     Dosage: 70 MG, D1 AND D8?POWDER FOR SOLUTION FOR INFUSION
     Route: 042
     Dates: start: 20250321
  6. PADCEV [Suspect]
     Active Substance: ENFORTUMAB VEDOTIN-EJFV
     Dosage: 66 MG, CYCLIC,( DAY 1 AND DAY 8 OF 21-DAY CYCLE)?POWDER FOR SOLUTION FOR INFUSION
     Route: 042
     Dates: start: 20250509
  7. PADCEV [Suspect]
     Active Substance: ENFORTUMAB VEDOTIN-EJFV
     Dosage: 68 MG, CYCLIC,(DAY 1 AND DAY 8 OF 21-DAY CYCLE)?POWDER FOR SOLUTION FOR INFUSION
     Route: 042
     Dates: start: 20250707
  8. PADCEV [Suspect]
     Active Substance: ENFORTUMAB VEDOTIN-EJFV
     Dosage: 68 MG, CYCLIC,(DAY 1 AND DAY 8 OF 21-DAY CYCLE)?POWDER FOR SOLUTION FOR INFUSION
     Route: 042
     Dates: start: 20250728
  9. PADCEV [Suspect]
     Active Substance: ENFORTUMAB VEDOTIN-EJFV
     Dosage: 68 MG, CYCLIC,(DAY 1 AND DAY 8 OF 21-DAY CYCLE)?POWDER FOR SOLUTION FOR INFUSION
     Route: 042
     Dates: start: 20250805
  10. PADCEV [Suspect]
     Active Substance: ENFORTUMAB VEDOTIN-EJFV
     Dosage: 50.7 MG, CYCLIC,(DAY 1 AND DAY 8 OF 21-DAY CYCLE)?POWDER FOR SOLUTION FOR INFUSION
     Route: 042
     Dates: start: 20250818
  11. PADCEV [Suspect]
     Active Substance: ENFORTUMAB VEDOTIN-EJFV
     Dosage: 50.7 MG, CYCLIC, DAY 1 AND DAY 8 OF 21-DAY CYCLE?POWDER FOR SOLUTION FOR INFUSION
     Route: 042
     Dates: start: 20250825
  12. PADCEV [Suspect]
     Active Substance: ENFORTUMAB VEDOTIN-EJFV
     Dosage: 68MG, DAY 1 AND DAY 8 OF 21-DAY CYCLE?POWDER FOR SOLUTION FOR INFUSION
     Route: 042
     Dates: start: 20250915
  13. PADCEV [Suspect]
     Active Substance: ENFORTUMAB VEDOTIN-EJFV
     Dosage: 68 MG, CYCLE 9, DAY 8?POWDER FOR SOLUTION FOR INFUSION
     Route: 042
     Dates: start: 20250922
  14. PADCEV [Suspect]
     Active Substance: ENFORTUMAB VEDOTIN-EJFV
     Dosage: 68.5 MG, DAY 1 AND DAY 8 OF 21-DAY CYCLE?POWDER FOR SOLUTION FOR INFUSION
     Route: 042
     Dates: start: 20251006
  15. KEYTRUDA [Concomitant]
     Active Substance: PEMBROLIZUMAB
     Indication: Product used for unknown indication
     Dosage: UNK
     Route: 065
  16. CANDESARTAN [Concomitant]
     Active Substance: CANDESARTAN
     Indication: Product used for unknown indication
     Route: 065

REACTIONS (9)
  - Deafness bilateral [Not Recovered/Not Resolved]
  - Nausea [Unknown]
  - Vomiting [Recovered/Resolved]
  - Chills [Not Recovered/Not Resolved]
  - Dry mouth [Not Recovered/Not Resolved]
  - Fatigue [Not Recovered/Not Resolved]
  - Pain [Unknown]
  - Blood pressure decreased [Unknown]
  - Weight decreased [Recovering/Resolving]

NARRATIVE: CASE EVENT DATE: 20250101
